FAERS Safety Report 6693266-9 (Version None)
Quarter: 2010Q2

REPORT INFORMATION
  Report Type: 
  Country: None (occurrence: None)
  Receive Date: 20100422
  Receipt Date: 20100414
  Transmission Date: 20101027
  Serious: Yes (Hospitalization, Disabling)
  Sender: FDA-Public Use
  Company Number: DE-MERCK-0401DEU00103

PATIENT
  Age: 81 Year
  Sex: Female
  Weight: 55 kg

DRUGS (8)
  1. FOSAMAX [Suspect]
     Indication: OSTEOPOROSIS
     Route: 048
     Dates: start: 20030518, end: 20090903
  2. FOSAMAX [Suspect]
     Indication: SPINAL FRACTURE
     Route: 048
     Dates: start: 20030518, end: 20090903
  3. CHOLECALCIFEROL [Concomitant]
     Indication: OSTEOPOROSIS
     Route: 065
     Dates: start: 20000731
  4. CALCIUM CARBONATE [Concomitant]
     Indication: OSTEOPOROSIS
     Route: 065
     Dates: start: 20000731
  5. BISOPROLOL FUMARATE AND HYDROCHLOROTHIAZIDE [Concomitant]
     Indication: HYPERTENSION
     Route: 065
  6. PREDNISONE [Concomitant]
     Indication: POLYMYALGIA RHEUMATICA
     Route: 065
     Dates: start: 20000701, end: 20031201
  7. VALSARTAN [Concomitant]
     Indication: HYPERTENSION
     Route: 065
  8. RIFAMPIN [Suspect]
     Indication: ANTIBIOTIC PROPHYLAXIS
     Route: 048
     Dates: start: 20090114

REACTIONS (9)
  - ADVERSE EVENT [None]
  - ARTHRALGIA [None]
  - HICCUPS [None]
  - MERALGIA PARAESTHETICA [None]
  - MUSCULAR WEAKNESS [None]
  - MYCOBACTERIAL INFECTION [None]
  - OSTEOARTHRITIS [None]
  - PAIN IN EXTREMITY [None]
  - SENSATION OF HEAVINESS [None]
